FAERS Safety Report 4396183-2 (Version None)
Quarter: 2004Q3

REPORT INFORMATION
  Report Type: 
  Country: None (occurrence: None)
  Receive Date: 20040713
  Receipt Date: 20040602
  Transmission Date: 20050211
  Serious: Yes (Death)
  Sender: FDA-Public Use
  Company Number: PHFR2004GB02299

PATIENT
  Age: 77 Year
  Sex: Male
  Weight: 76 kg

DRUGS (5)
  1. RIVASTIGMINE [Suspect]
     Indication: DEMENTIA
     Dosage: 3 MG, TID
     Route: 048
     Dates: start: 20040430, end: 20040515
  2. CO-CARELDOPA [Concomitant]
     Indication: DEMENTIA
     Dosage: 125MG/DAY
     Route: 048
  3. ADCAL-D3 [Concomitant]
     Route: 065
  4. VITAMIN B COMPLEX CAP [Concomitant]
     Route: 048
  5. FOLIC ACID [Concomitant]
     Dosage: 5MG/DAY
     Route: 065

REACTIONS (4)
  - ATRIOVENTRICULAR BLOCK COMPLETE [None]
  - CARDIAC ARREST [None]
  - DIZZINESS [None]
  - ELECTROCARDIOGRAM ABNORMAL [None]
